FAERS Safety Report 7548436-4 (Version None)
Quarter: 2011Q2

REPORT INFORMATION
  Report Type: 
  Country: None (occurrence: None)
  Receive Date: 20110524
  Receipt Date: 20110125
  Transmission Date: 20111010
  Serious: No
  Sender: FDA-Public Use
  Company Number: 026246

PATIENT
  Sex: Male
  Weight: 71 kg

DRUGS (3)
  1. CIMZIA [Suspect]
     Indication: CROHN'S DISEASE
     Dosage: (SUBCUTANEOUS), (400 MG 1X/28 DAYS SUBCUTANEOUS)
     Route: 058
     Dates: start: 20090325
  2. ASACOL [Concomitant]
  3. FOLIC ACID [Concomitant]

REACTIONS (3)
  - HAEMATOCHEZIA [None]
  - URINARY TRACT INFECTION [None]
  - ABNORMAL FAECES [None]
